FAERS Safety Report 8351984-0 (Version None)
Quarter: 2012Q2

REPORT INFORMATION
  Report Type: 
  Country: None (occurrence: None)
  Receive Date: 20120510
  Receipt Date: 20120510
  Transmission Date: 20120825
  Serious: Yes (Life-Threatening, Hospitalization, Other)
  Sender: FDA-Public Use
  Company Number: None

PATIENT
  Age: 75 Year
  Sex: Male
  Weight: 106.5953 kg

DRUGS (1)
  1. PRADAXA [Suspect]
     Indication: ATRIAL FIBRILLATION
     Dosage: 150MG MG -1 CAPSULE- EVERY 12 HOURS PO
     Route: 048
     Dates: start: 20111201, end: 20111218

REACTIONS (1)
  - PERICARDIAL HAEMORRHAGE [None]
